FAERS Safety Report 7515211-6 (Version None)
Quarter: 2011Q2

REPORT INFORMATION
  Report Type: 
  Country: None (occurrence: None)
  Receive Date: 20110601
  Receipt Date: 20110520
  Transmission Date: 20111010
  Serious: Yes (Other)
  Sender: FDA-Public Use
  Company Number: PHHY2011US02878

PATIENT
  Sex: Female

DRUGS (1)
  1. GILENYA [Suspect]
     Indication: MULTIPLE SCLEROSIS
     Dosage: 0.5 MG, DAILY
     Dates: start: 20110104, end: 20110111

REACTIONS (11)
  - VISUAL IMPAIRMENT [None]
  - ABNORMAL SENSATION IN EYE [None]
  - EYE HAEMORRHAGE [None]
  - HERPES SIMPLEX [None]
  - STEVENS-JOHNSON SYNDROME [None]
  - OROPHARYNGEAL BLISTERING [None]
  - EYE BURNS [None]
  - RASH GENERALISED [None]
  - HEART RATE DECREASED [None]
  - MOUTH HAEMORRHAGE [None]
  - HALLUCINATION, VISUAL [None]
